FAERS Safety Report 16794011 (Version 2)
Quarter: 2019Q3

REPORT INFORMATION
  Report Type: Spontaneous
  Country: JP (occurrence: JP)
  Receive Date: 20190911
  Receipt Date: 20190930
  Transmission Date: 20191005
  Serious: Yes (Other)
  Sender: FDA-Public Use
  Company Number: JP-SUN PHARMACEUTICAL INDUSTRIES LTD-2019RR-220482

PATIENT
  Age: 63 Year
  Sex: Male

DRUGS (8)
  1. CARBAMAZEPINE. [Interacting]
     Active Substance: CARBAMAZEPINE
     Indication: DELUSIONAL DISORDER, PERSECUTORY TYPE
     Dosage: 500 MILLIGRAM, DAILY
     Route: 065
  2. RISPERIDONE. [Interacting]
     Active Substance: RISPERIDONE
     Indication: AGGRESSION
     Dosage: 5 MILLIGRAM, DAILY
     Route: 065
  3. RISPERIDONE. [Interacting]
     Active Substance: RISPERIDONE
     Indication: AGITATION
  4. CARBAMAZEPINE. [Interacting]
     Active Substance: CARBAMAZEPINE
     Indication: AGGRESSION
  5. CARBAMAZEPINE. [Interacting]
     Active Substance: CARBAMAZEPINE
     Indication: AGITATION
  6. RISPERIDONE. [Interacting]
     Active Substance: RISPERIDONE
     Indication: AGGRESSION
  7. RISPERIDONE. [Suspect]
     Active Substance: RISPERIDONE
     Indication: DELUSIONAL DISORDER, PERSECUTORY TYPE
     Dosage: 4 MILLIGRAM, DAILY
     Route: 065
  8. CARBAMAZEPINE. [Interacting]
     Active Substance: CARBAMAZEPINE
     Indication: AGGRESSION
     Dosage: 900 MILLIGRAM, DAILY
     Route: 065

REACTIONS (3)
  - Catatonia [Unknown]
  - Drug interaction [Unknown]
  - Therapeutic product effect decreased [Unknown]
